FAERS Safety Report 16551145 (Version 1)
Quarter: 2019Q3

REPORT INFORMATION
  Report Type: Spontaneous
  Country: DE (occurrence: DE)
  Receive Date: 20190710
  Receipt Date: 20190710
  Transmission Date: 20191004
  Serious: Yes (Hospitalization)
  Sender: FDA-Public Use
  Company Number: DE-ACCORD-137920

PATIENT
  Age: 92 Year
  Sex: Male

DRUGS (15)
  1. ASPIRIN. [Suspect]
     Active Substance: ASPIRIN
     Indication: PRODUCT USED FOR UNKNOWN INDICATION
     Dosage: 100 MG, 1-0-0-0
  2. RAMIPRIL. [Concomitant]
     Active Substance: RAMIPRIL
     Dosage: 2.5 MG, 0.5-0-0-0
  3. ARANESP [Concomitant]
     Active Substance: DARBEPOETIN ALFA
     Dosage: 30 MCG, 1 X/WEEKLY, SO, AMPOULES
     Route: 058
  4. TAMSULOSIN/TAMSULOSIN HYDROCHLORIDE [Concomitant]
     Dosage: 0.4 MG, 1-0-0-0
  5. SANDOCAL D [Concomitant]
     Dosage: 1000/800 MG/IE, 1-0-0-0
  6. COLCHICUM [Concomitant]
     Active Substance: COLCHICINE
     Dosage: 0.5 MG, AS REQUIRED
  7. ALLOPURINOL. [Concomitant]
     Active Substance: ALLOPURINOL
     Dosage: 100 MG, 0-0-1-0
  8. NITRANGIN [Concomitant]
     Dosage: NK MG, AS REQUIRED
  9. FERRO SANOL COMP [Concomitant]
     Dosage: 30/0.5/2.5 MG/MG/MCG, 0-0-1-0
  10. METOPROLOL. [Concomitant]
     Active Substance: METOPROLOL
     Dosage: 47.5 MG, 1-0-1-0
  11. XIPAMID [Suspect]
     Active Substance: XIPAMIDE
     Indication: PRODUCT USED FOR UNKNOWN INDICATION
     Dosage: 10 MG, 1-0-1-0
  12. ATROVENT [Concomitant]
     Active Substance: IPRATROPIUM BROMIDE
     Dosage: NK MCG, 0-0-1-0
     Route: 055
  13. DOXEPIN [Concomitant]
     Active Substance: DOXEPIN
     Dosage: 100 MG, 0-0-1-0
  14. SALBUTAMOL [Concomitant]
     Active Substance: ALBUTEROL
     Dosage: NK MCG, 0-0-5-0
     Route: 055
  15. FUROSEMIDE. [Suspect]
     Active Substance: FUROSEMIDE
     Indication: PRODUCT USED FOR UNKNOWN INDICATION
     Dosage: 40 MG, 1-0-1-0

REACTIONS (2)
  - Renal failure [Unknown]
  - Anaemia [Unknown]
